FAERS Safety Report 16011029 (Version 1)
Quarter: 2019Q1

REPORT INFORMATION
  Report Type: Report from Study
  Country: FR (occurrence: FR)
  Receive Date: 20190227
  Receipt Date: 20190227
  Transmission Date: 20190418
  Serious: Yes (Other)
  Sender: FDA-Public Use
  Company Number: FR-ACCORD-109514

PATIENT
  Age: 67 Year
  Sex: Female
  Weight: 55 kg

DRUGS (5)
  1. ERBITUX [Suspect]
     Active Substance: CETUXIMAB
     Indication: RECTAL CANCER METASTATIC
     Dosage: 390 MG, CYCLIC?ALSO RECEIVED 3750 MG ON 14-AUG-2012, 650 MG ON 14-AUG-2012
     Route: 042
     Dates: start: 20120814
  2. FOLINIC ACID [Suspect]
     Active Substance: LEUCOVORIN
     Indication: RECTAL CANCER METASTATIC
     Dosage: UNK
     Dates: start: 20120412
  3. FLUOROURACIL PFIZER [Suspect]
     Active Substance: FLUOROURACIL
     Indication: RECTAL CANCER METASTATIC
     Dosage: 650 MG, CYCLIC, ALSO RECEIVED ON 12-APR-2012, 600 MG ON 01-AUG-2012
     Route: 042
     Dates: start: 20120822, end: 20120829
  4. TOLEXINE [Concomitant]
     Active Substance: DOXYCYCLINE
     Indication: DERMATITIS ACNEIFORM
     Dosage: UNK
     Dates: end: 201207
  5. IRINOTECAN [Suspect]
     Active Substance: IRINOTECAN
     Indication: RECTAL CANCER METASTATIC
     Dosage: ALSO RECEIVED 280 MG ON 14-AUG-2012
     Route: 042
     Dates: start: 20120801, end: 20120829

REACTIONS (1)
  - Photosensitivity reaction [Recovering/Resolving]

NARRATIVE: CASE EVENT DATE: 20120719
